FAERS Safety Report 8484023-1 (Version None)
Quarter: 2012Q2

REPORT INFORMATION
  Report Type: 
  Country: None (occurrence: None)
  Receive Date: 20120402
  Receipt Date: 20110422
  Transmission Date: 20120825
  Serious: Yes (Other)
  Sender: FDA-Public Use
  Company Number: A-NJ2011-48057

PATIENT
  Age: 71 Year
  Sex: Female

DRUGS (7)
  1. TRACLEER [Suspect]
     Indication: PULMONARY ARTERIAL HYPERTENSION
     Dosage: 62.5 MG, BID, ORAL : 62.5 MG, BID, ORAL : ORAL : 125 MG, BID, OCCLUSIVE
     Route: 048
     Dates: start: 20071229, end: 20110401
  2. TRACLEER [Suspect]
     Indication: PULMONARY ARTERIAL HYPERTENSION
     Dosage: 62.5 MG, BID, ORAL : 62.5 MG, BID, ORAL : ORAL : 125 MG, BID, OCCLUSIVE
     Route: 048
     Dates: start: 20110501, end: 20110513
  3. TRACLEER [Suspect]
     Indication: PULMONARY ARTERIAL HYPERTENSION
     Dosage: 62.5 MG, BID, ORAL : 62.5 MG, BID, ORAL : ORAL : 125 MG, BID, OCCLUSIVE
     Route: 048
     Dates: start: 20110812, end: 20110819
  4. TRACLEER [Suspect]
     Indication: PULMONARY ARTERIAL HYPERTENSION
     Dosage: 62.5 MG, BID, ORAL : 62.5 MG, BID, ORAL : ORAL : 125 MG, BID, OCCLUSIVE
     Route: 048
     Dates: start: 20110401, end: 20110501
  5. REVATIO [Concomitant]
  6. VENTAVIS [Suspect]
     Indication: PULMONARY ARTERIAL HYPERTENSION
     Dosage: RESPIRATORY
     Route: 055
     Dates: start: 20110404, end: 20110401
  7. COUMADIN [Concomitant]

REACTIONS (4)
  - NO THERAPEUTIC RESPONSE [None]
  - OEDEMA [None]
  - DYSPNOEA [None]
  - OEDEMA PERIPHERAL [None]
